FAERS Safety Report 4393064-5 (Version None)
Quarter: 2004Q3

REPORT INFORMATION
  Report Type: 
  Country: None (occurrence: None)
  Receive Date: 20040708
  Receipt Date: 20040615
  Transmission Date: 20050211
  Serious: Yes (Other)
  Sender: FDA-Public Use
  Company Number: PHFR2004GB02494

PATIENT
  Sex: Female

DRUGS (2)
  1. TEGRETOL [Suspect]
     Indication: MOOD SWINGS
     Dosage: 1000 MG/DAY
     Route: 048
     Dates: start: 20020101, end: 20040618
  2. PAROXETINE HCL [Concomitant]
     Dosage: 15 MG/DAY
     Route: 048
     Dates: start: 20040301

REACTIONS (13)
  - AGITATION [None]
  - CONFUSIONAL STATE [None]
  - DIPLOPIA [None]
  - DYSARTHRIA [None]
  - FATIGUE [None]
  - GAMMA-GLUTAMYLTRANSFERASE INCREASED [None]
  - HEPATOCELLULAR DAMAGE [None]
  - HYPOTHYROIDISM [None]
  - LIVER FUNCTION TEST ABNORMAL [None]
  - LUPUS-LIKE SYNDROME [None]
  - OCULAR ICTERUS [None]
  - SOMNOLENCE [None]
  - THYROID FUNCTION TEST ABNORMAL [None]
